FAERS Safety Report 5332954-3 (Version None)
Quarter: 2007Q1

REPORT INFORMATION
  Report Type: 
  Country: None (occurrence: None)
  Receive Date: 20070306
  Receipt Date: 20060807
  Transmission Date: 20070707
  Serious: Yes (Other)
  Sender: FDA-Public Use
  Company Number: A03200605035

PATIENT
  Age: 79 Year
  Sex: Female
  Weight: 82.54 kg

DRUGS (4)
  1. PLAVIX [Suspect]
     Indication: CEREBROVASCULAR ACCIDENT
     Dosage: 75 MG QD - ORAL
     Route: 048
     Dates: start: 20060323
  2. ASCORBIC ACID [Concomitant]
  3. VITAMIN E [Concomitant]
  4. COD LIVER OIL [Concomitant]

REACTIONS (6)
  - DEPRESSION [None]
  - HEADACHE [None]
  - NAUSEA [None]
  - PHARYNGOLARYNGEAL PAIN [None]
  - RHINORRHOEA [None]
  - TRANSIENT ISCHAEMIC ATTACK [None]
